FAERS Safety Report 18648042 (Version 1)
Quarter: 2020Q4

REPORT INFORMATION
  Report Type: Spontaneous
  Country: US (occurrence: US)
  Receive Date: 20201221
  Receipt Date: 20201221
  Transmission Date: 20210114
  Serious: Yes (Other)
  Sender: FDA-Public Use
  Company Number: None

PATIENT
  Age: 62 Year
  Sex: Male
  Weight: 95.3 kg

DRUGS (9)
  1. MOTEGRITY [Concomitant]
     Active Substance: PRUCALOPRIDE SUCCINATE
  2. FAMOTIDINE. [Concomitant]
     Active Substance: FAMOTIDINE
  3. TRIAZOLAM. [Concomitant]
     Active Substance: TRIAZOLAM
  4. METOCLOPRAMIDE. [Concomitant]
     Active Substance: METOCLOPRAMIDE
  5. AMITIZA [Concomitant]
     Active Substance: LUBIPROSTONE
  6. PROPECIA [Concomitant]
     Active Substance: FINASTERIDE
  7. ASPIRIN. [Concomitant]
     Active Substance: ASPIRIN
  8. REPATHA [Suspect]
     Active Substance: EVOLOCUMAB
     Indication: ARTERIOSCLEROSIS
     Dosage: ?          OTHER FREQUENCY:Q 14 DAYS;?
     Route: 058
     Dates: start: 20200113, end: 20201208
  9. TESTOSTERONE. [Concomitant]
     Active Substance: TESTOSTERONE

REACTIONS (3)
  - Anxiety [None]
  - Influenza like illness [None]
  - Chest pain [None]

NARRATIVE: CASE EVENT DATE: 20201119
